FAERS Safety Report 11644616 (Version 1)
Quarter: 2015Q4

REPORT INFORMATION
  Report Type: Spontaneous
  Country: US (occurrence: None)
  Receive Date: 20151019
  Receipt Date: 20151019
  Transmission Date: 20160304
  Serious: Yes (Other)
  Sender: FDA-Public Use
  Company Number: None

PATIENT
  Age: 33 Year
  Sex: Female

DRUGS (19)
  1. H.P. ACTHAR [Suspect]
     Active Substance: CORTICOTROPIN
     Indication: MULTIPLE SCLEROSIS
     Dosage: 80 UNITS/ML
     Route: 030
     Dates: start: 20151009
  2. AVANDIA [Concomitant]
     Active Substance: ROSIGLITAZONE MALEATE
  3. NIASPAN [Concomitant]
     Active Substance: NIACIN
  4. METFORMIN [Concomitant]
     Active Substance: METFORMIN HYDROCHLORIDE
  5. TRANEX ACID [Concomitant]
  6. HYDROCODONE [Concomitant]
     Active Substance: HYDROCODONE
  7. FAMCICLOVIR. [Concomitant]
     Active Substance: FAMCICLOVIR
  8. MONTELUKAST [Concomitant]
     Active Substance: MONTELUKAST SODIUM
  9. CYCLOBENZAPRINE [Concomitant]
     Active Substance: CYCLOBENZAPRINE
  10. LANSOPRAZOLE. [Concomitant]
     Active Substance: LANSOPRAZOLE
  11. CLOMIPHENE [Concomitant]
     Active Substance: CLOMIPHENE
  12. AMPHETAMINE SALTS [Concomitant]
     Active Substance: AMPHETAMINE ASPARTATE\AMPHETAMINE SULFATE\DEXTROAMPHETAMINE SACCHARATE\DEXTROAMPHETAMINE SULFATE
  13. COPAXONE [Concomitant]
     Active Substance: GLATIRAMER ACETATE
  14. CELEBREX [Concomitant]
     Active Substance: CELECOXIB
  15. ALPRAZOLAM. [Concomitant]
     Active Substance: ALPRAZOLAM
  16. VITAMIN D [Concomitant]
     Active Substance: CHOLECALCIFEROL
  17. GABAPENTIN. [Concomitant]
     Active Substance: GABAPENTIN
  18. FEMCON FE [Concomitant]
     Active Substance: ETHINYL ESTRADIOL\NORETHINDRONE ACETATE
  19. DICLOFENAC [Concomitant]
     Active Substance: DICLOFENAC

REACTIONS (2)
  - Pain [None]
  - Arthralgia [None]

NARRATIVE: CASE EVENT DATE: 20151011
